FAERS Safety Report 16818812 (Version 1)
Quarter: 2019Q3

REPORT INFORMATION
  Report Type: Report from Study
  Country: US (occurrence: US)
  Receive Date: 20190917
  Receipt Date: 20190917
  Transmission Date: 20191005
  Serious: Yes (Hospitalization)
  Sender: FDA-Public Use
  Company Number: US-GILEAD-2019-0428560

PATIENT
  Age: 45 Year
  Sex: Male

DRUGS (1)
  1. TENOFOVIR ALAFENAMIDE [Suspect]
     Active Substance: TENOFOVIR ALAFENAMIDE
     Indication: HEPATITIS B
     Dosage: 25 MG, QD
     Route: 048
     Dates: end: 201906

REACTIONS (3)
  - Intentional product use issue [Not Recovered/Not Resolved]
  - Chest pain [Not Recovered/Not Resolved]
  - Off label use [Unknown]

NARRATIVE: CASE EVENT DATE: 201906
